FAERS Safety Report 17367234 (Version 3)
Quarter: 2020Q1

REPORT INFORMATION
  Report Type: Spontaneous
  Country: US (occurrence: US)
  Receive Date: 20200204
  Receipt Date: 20200303
  Transmission Date: 20200409
  Serious: Yes (Other)
  Sender: FDA-Public Use
  Company Number: US-PFIZER INC-2020045536

PATIENT
  Age: 62 Year
  Sex: Male
  Weight: 72.29 kg

DRUGS (2)
  1. AMLODIPINE [Concomitant]
     Active Substance: AMLODIPINE BESYLATE
     Dosage: 5 MG, DAILY
  2. CHANTIX [Suspect]
     Active Substance: VARENICLINE TARTRATE
     Indication: SMOKING CESSATION THERAPY
     Dosage: 1 MG, 2X/DAY(TAKE ONE TABLET BY ORAL ROUTE TWO TIMES EVERY DAY WITH GLASS OF WATER AFTER MEALS.)
     Route: 048

REACTIONS (6)
  - Musculoskeletal stiffness [Not Recovered/Not Resolved]
  - Dysphagia [Recovering/Resolving]
  - Gangrene [Unknown]
  - Pain in extremity [Not Recovered/Not Resolved]
  - Raynaud^s phenomenon [Not Recovered/Not Resolved]
  - Gastrooesophageal reflux disease [Recovering/Resolving]
